FAERS Safety Report 7763212-5 (Version None)
Quarter: 2011Q3

REPORT INFORMATION
  Report Type: 
  Country: None (occurrence: None)
  Receive Date: 20110920
  Receipt Date: 20110914
  Transmission Date: 20111222
  Serious: Yes (Other)
  Sender: FDA-Public Use
  Company Number: PHHY2010CA84490

PATIENT
  Sex: Female
  Weight: 71 kg

DRUGS (18)
  1. FORTEO [Concomitant]
     Dosage: 20 MG,DAILY
  2. ALPRAZOLAM [Concomitant]
     Dosage: UNK UKN, UNK
  3. CALCIUM CARBONATE [Concomitant]
     Dosage: 500 UKN, BID
     Dates: start: 20020131
  4. ZOLEDRONOC ACID [Suspect]
     Indication: OSTEOPOROSIS
     Dosage: 5 MG, UNK
     Route: 042
     Dates: start: 20091125
  5. METOPROLOL TARTRATE [Concomitant]
     Dosage: 1 DF, BID
  6. VITAMIN D [Concomitant]
     Dosage: 400 UKN, BID
     Dates: start: 20020131
  7. SEREVENT [Concomitant]
     Dosage: UNK UKN, UNK
  8. HORMONES [Concomitant]
     Dosage: DAILY
  9. PERINDOPRIL ERBUMINE [Concomitant]
     Dosage: UNK UKN, UNK
  10. ASPIRIN [Concomitant]
     Dosage: UNK UKN, UNK
  11. FUROSEMIDE [Concomitant]
     Dosage: 1 DF, DAILY
  12. DIDROCAL [Concomitant]
     Dosage: 400 MG, DAILY
  13. MIACALCIN [Concomitant]
     Dosage: 200 IU, DAILY
  14. CARBOCAL D [Concomitant]
     Dosage: 1 DF, BID
  15. SIMVASTATIN [Concomitant]
     Dosage: UNK UKN, UNK
  16. VITAMIN D [Concomitant]
     Dosage: 10000 U, QW
     Dates: start: 20100517
  17. ZOLEDRONOC ACID [Suspect]
     Dosage: 5 MG, UNK
     Route: 042
     Dates: start: 20101209
  18. EVISTA [Concomitant]
     Dosage: 670 MG, DAILY

REACTIONS (4)
  - BACK PAIN [None]
  - ARTHRALGIA [None]
  - MITRAL VALVE STENOSIS [None]
  - PAIN IN EXTREMITY [None]
